FAERS Safety Report 9018482 (Version 1)
Quarter: 2013Q1

REPORT INFORMATION
  Report Type: Spontaneous
  Country: US (occurrence: None)
  Receive Date: 20130111
  Receipt Date: 20130111
  Transmission Date: 20140127
  Serious: Yes (Life-Threatening, Hospitalization, Disabling, Other)
  Sender: FDA-Public Use
  Company Number: None

PATIENT
  Age: 51 Year
  Sex: Female
  Weight: 68.7 kg

DRUGS (2)
  1. AVASTIN [Suspect]
     Indication: BRAIN NEOPLASM
     Dosage: 748 MG Q14 DAYS IV DRIP
     Route: 041
     Dates: start: 20121211, end: 20121226
  2. DEXAMETHASONE [Suspect]
     Dosage: 2 MG Q8 HOURS PO
     Route: 048

REACTIONS (5)
  - Mental status changes [None]
  - Muscular weakness [None]
  - VIIth nerve paralysis [None]
  - Cerebrovascular accident [None]
  - Escherichia urinary tract infection [None]
